FAERS Safety Report 6771902-6 (Version None)
Quarter: 2010Q2

REPORT INFORMATION
  Report Type: 
  Country: None (occurrence: None)
  Receive Date: 20100616
  Receipt Date: 20090615
  Transmission Date: 20101027
  Serious: No
  Sender: FDA-Public Use
  Company Number: US-ASTRAZENECA-2009UW15234

PATIENT
  Age: 63 Year
  Sex: Female
  Weight: 54.4 kg

DRUGS (6)
  1. ENTOCORT EC [Suspect]
     Indication: COLITIS MICROSCOPIC
     Dosage: 1 CAPSULES
     Route: 048
     Dates: start: 20090301
  2. ENTOCORT EC [Suspect]
     Dosage: 3 CAPSULES
     Route: 048
     Dates: start: 20090301
  3. ENTOCORT EC [Suspect]
     Dosage: 2 CAPSULES
     Route: 048
     Dates: start: 20090301
  4. ATROVENT [Concomitant]
  5. BACLOFEN [Concomitant]
  6. XANAX [Concomitant]

REACTIONS (4)
  - BACK PAIN [None]
  - CHRONIC SINUSITIS [None]
  - EAR DISORDER [None]
  - RHINITIS [None]
